FAERS Safety Report 7296378-4 (Version None)
Quarter: 2011Q1

REPORT INFORMATION
  Report Type: 
  Country: None (occurrence: None)
  Receive Date: 20110216
  Receipt Date: 20110207
  Transmission Date: 20110831
  Serious: Yes (Other)
  Sender: FDA-Public Use
  Company Number: FR-ASTRAZENECA-2011SE08031

PATIENT
  Age: 74 Year
  Sex: Female
  Weight: 60 kg

DRUGS (6)
  1. OXYGEN [Concomitant]
  2. ANGIOTENSIN CONVERTING ENZYME INHIBITOR [Concomitant]
     Indication: HYPERTENSION
  3. FLECAINIDE [Interacting]
     Indication: ATRIAL TACHYCARDIA
  4. UNSPECIFIED STATIN [Concomitant]
     Indication: HYPERCHOLESTEROLAEMIA
  5. LIDOCAINE EPINEPHRIN [Suspect]
     Indication: LOCAL ANAESTHESIA
     Route: 053
  6. LIDOCAINE EPINEPHRIN [Interacting]
     Route: 053

REACTIONS (6)
  - DISORIENTATION [None]
  - CONFUSIONAL STATE [None]
  - DRUG INTERACTION [None]
  - MYOCLONUS [None]
  - LOSS OF CONSCIOUSNESS [None]
  - EYE MOVEMENT DISORDER [None]
